FAERS Safety Report 6268025-1 (Version None)
Quarter: 2009Q3

REPORT INFORMATION
  Report Type: 
  Country: None (occurrence: None)
  Receive Date: 20090713
  Receipt Date: 20090630
  Transmission Date: 20100115
  Serious: Yes (Hospitalization)
  Sender: FDA-Public Use
  Company Number: 20097035

PATIENT
  Sex: Male

DRUGS (5)
  1. LIORESAL [Suspect]
     Indication: MUSCLE SPASTICITY
     Dosage: MCG, DAILY, INTRATHECAL
     Route: 037
  2. DILAUDID [Concomitant]
  3. FENTANYL-100 [Concomitant]
  4. MARCAINE [Concomitant]
  5. ORAL MEDICATION NOT SPECIFIED [Concomitant]

REACTIONS (4)
  - DIZZINESS [None]
  - MIOSIS [None]
  - OVERDOSE [None]
  - RESPIRATORY DISORDER [None]
